FAERS Safety Report 8271807-8 (Version None)
Quarter: 2012Q2

REPORT INFORMATION
  Report Type: 
  Country: None (occurrence: None)
  Receive Date: 20120410
  Receipt Date: 20120328
  Transmission Date: 20120825
  Serious: Yes (Hospitalization, Other)
  Sender: FDA-Public Use
  Company Number: US-ROCHE-GNE290948

PATIENT
  Age: 18 Year
  Sex: Female

DRUGS (4)
  1. ALTEPLASE [Suspect]
     Indication: VENOUS THROMBOSIS
     Dosage: UNK
     Route: 042
  2. ENOXAPARIN SODIUM [Suspect]
     Indication: VENOUS THROMBOSIS
     Dosage: UNK
  3. LEPIRUDIN [Suspect]
     Indication: VENOUS THROMBOSIS
     Dosage: UNK
  4. HEPARIN SODIUM [Suspect]
     Indication: VENOUS THROMBOSIS
     Dosage: UNK

REACTIONS (14)
  - EPISTAXIS [None]
  - BUDD-CHIARI SYNDROME [None]
  - VASCULAR OCCLUSION [None]
  - HAEMOTHORAX [None]
  - HEPARIN-INDUCED THROMBOCYTOPENIA [None]
  - TREATMENT NONCOMPLIANCE [None]
  - RENAL VEIN THROMBOSIS [None]
  - VASCULAR COMPRESSION [None]
  - SPLENIC INFARCTION [None]
  - OFF LABEL USE [None]
  - SPLENIC RUPTURE [None]
  - HEPATIC VEIN THROMBOSIS [None]
  - VENA CAVA THROMBOSIS [None]
  - HEPATIC CONGESTION [None]
